FAERS Safety Report 9130978 (Version 1)
Quarter: 2013Q1

REPORT INFORMATION
  Report Type: Spontaneous
  Country: US (occurrence: US)
  Receive Date: 20130301
  Receipt Date: 20130301
  Transmission Date: 20140127
  Serious: Yes (Other)
  Sender: FDA-Public Use
  Company Number: US-SHIRE-ALL1-2013-01126

PATIENT
  Age: 9 Year
  Sex: Female

DRUGS (2)
  1. INTUNIV [Suspect]
     Indication: PRODUCT USED FOR UNKNOWN INDICATION
     Dosage: 3 MG, 1X/DAY:QD (AT NIGHT)
     Route: 048
     Dates: end: 201302
  2. INTUNIV [Suspect]
     Dosage: 2 MG, UNKNOWN
     Route: 048

REACTIONS (4)
  - Delirium [Recovered/Resolved]
  - Impulsive behaviour [Recovered/Resolved]
  - Psychomotor hyperactivity [Recovered/Resolved]
  - Somnolence [Recovered/Resolved]
